FAERS Safety Report 6968460-X (Version None)
Quarter: 2010Q3

REPORT INFORMATION
  Report Type: 
  Country: None (occurrence: None)
  Receive Date: 20100907
  Receipt Date: 20100825
  Transmission Date: 20110219
  Serious: Yes (Other)
  Sender: FDA-Public Use
  Company Number: PHHY2010IN57684

PATIENT
  Age: 52 Year
  Sex: Male

DRUGS (1)
  1. ZOLEDRONIC ACID [Suspect]
     Indication: PROSTATE CANCER METASTATIC
     Dosage: 4 MG, MONTHLY FOR FIRST SIX MONTHS
     Route: 042

REACTIONS (8)
  - DENTAL CARIES [None]
  - OSTEONECROSIS OF JAW [None]
  - PURULENT DISCHARGE [None]
  - SWELLING [None]
  - TOOTH EXTRACTION [None]
  - TOOTH INFECTION [None]
  - TOOTHACHE [None]
  - WOUND [None]
